FAERS Safety Report 25851035 (Version 2)
Quarter: 2025Q4

REPORT INFORMATION
  Report Type: Spontaneous
  Country: IL (occurrence: IL)
  Receive Date: 20250926
  Receipt Date: 20251014
  Transmission Date: 20260118
  Serious: Yes (Hospitalization, Other)
  Sender: ACCORD
  Company Number: IL-Accord-506335

PATIENT
  Age: 24 Year
  Sex: Female

DRUGS (8)
  1. METHOTREXATE [Suspect]
     Active Substance: METHOTREXATE
     Indication: Osteosarcoma
     Dosage: 12 GR/M2, FIRST DOSE
     Dates: start: 2023, end: 20240128
  2. ADRIAMYCIN [Concomitant]
     Active Substance: DOXORUBICIN HYDROCHLORIDE
     Indication: Osteosarcoma
     Dosage: FOUR COURSES
     Dates: start: 20231116
  3. CISPLATIN [Concomitant]
     Active Substance: CISPLATIN
     Indication: Osteosarcoma
     Dosage: FOUR COURSES
     Dates: start: 20231116
  4. LEUCOVORIN [Concomitant]
     Active Substance: LEUCOVORIN\LEUCOVORIN CALCIUM
     Indication: Chondroblastoma
     Dosage: LEUCOVORIN RESCUE WAS STARTED 24 HOURS AFTER THE
     Dates: start: 2023
  5. METHOTREXATE [Suspect]
     Active Substance: METHOTREXATE
     Indication: Osteosarcoma
     Dosage: 8 GR/M2,THREE CYCLES
     Dates: start: 2023, end: 20240124
  6. METHOTREXATE [Suspect]
     Active Substance: METHOTREXATE
     Indication: Osteosarcoma
     Dosage: FOURTH DOSE
     Dates: start: 2023, end: 2024
  7. LEUCOVORIN [Concomitant]
     Active Substance: LEUCOVORIN\LEUCOVORIN CALCIUM
     Indication: Osteosarcoma
     Dosage: INCREASE IN THE DOSE OF LEUCOVORIN TO 100 MG/M2
  8. LEUCOVORIN [Concomitant]
     Active Substance: LEUCOVORIN\LEUCOVORIN CALCIUM
     Indication: Chondroblastoma
     Dosage: LEUCOVORIN 15 MG/M2 EVERY 4 HOURS FOR 14 DOSES
     Dates: start: 2023

REACTIONS (5)
  - Neurotoxicity [Recovered/Resolved]
  - Neurological symptom [Recovered/Resolved]
  - Monoparesis [Recovered/Resolved]
  - Dysarthria [Recovered/Resolved]
  - Facial paralysis [Recovered/Resolved]

NARRATIVE: CASE EVENT DATE: 20240202
